FAERS Safety Report 4417772-2 (Version None)
Quarter: 2004Q2

REPORT INFORMATION
  Report Type: 
  Country: None (occurrence: None)
  Receive Date: 20040621
  Receipt Date: 20040331
  Transmission Date: 20050107
  Serious: No
  Sender: FDA-Public Use
  Company Number: PHEH2004US03703

PATIENT
  Age: 60 Year
  Sex: Male

DRUGS (9)
  1. ZOMETA [Suspect]
     Indication: MULTIPLE MYELOMA
     Dosage: 4 MG, EVERY 3 WEEKS, INTRAVENOUS
     Route: 042
     Dates: start: 20020603
  2. THALIDOMIDE (THALIDOMIDE) [Concomitant]
  3. VELCADE [Concomitant]
  4. CHLORHEXIDINE (CHLORHEXIDINE) [Concomitant]
  5. TRAZODONE HCL [Concomitant]
  6. ZOLOFT [Concomitant]
  7. PAMIDRONATE DISODIUM [Concomitant]
  8. NEURONTIN [Concomitant]
  9. PROCRIT (ERYTHROPOIETIN) [Concomitant]

REACTIONS (3)
  - GINGIVAL RECESSION [None]
  - ORAL SURGERY [None]
  - PERIODONTITIS [None]
